FAERS Safety Report 9781451 (Version 3)
Quarter: 2014Q1

REPORT INFORMATION
  Report Type: Spontaneous
  Country: CH (occurrence: CH)
  Receive Date: 20131224
  Receipt Date: 20140107
  Transmission Date: 20141002
  Serious: Yes (Other)
  Sender: FDA-Public Use
  Company Number: CH-JNJFOC-20131215004

PATIENT
  Age: 48 Year
  Sex: Female
  Weight: 94.2 kg

DRUGS (3)
  1. SIMPONI [Suspect]
     Indication: SPONDYLITIS
     Route: 058
     Dates: start: 201111, end: 201212
  2. SIMPONI [Suspect]
     Indication: RHEUMATOID ARTHRITIS
     Route: 058
     Dates: start: 201111, end: 201212
  3. ACE INHIBITOR [Suspect]
     Indication: HYPERTENSION
     Route: 065

REACTIONS (2)
  - Angioedema [Recovered/Resolved]
  - Fluid retention [Recovered/Resolved]
